FAERS Safety Report 24556849 (Version 1)
Quarter: 2024Q4

REPORT INFORMATION
  Report Type: Spontaneous
  Country: US (occurrence: US)
  Receive Date: 20241028
  Receipt Date: 20241028
  Transmission Date: 20250115
  Serious: Yes (Hospitalization, Other)
  Sender: MERCK
  Company Number: US-009507513-2410USA010928

PATIENT
  Age: 40 Year
  Sex: Female

DRUGS (3)
  1. CUBICIN [Suspect]
     Active Substance: DAPTOMYCIN
     Indication: Sepsis
  2. CUBICIN [Suspect]
     Active Substance: DAPTOMYCIN
     Indication: Evidence based treatment
  3. ATORVASTATIN [Concomitant]
     Active Substance: ATORVASTATIN

REACTIONS (1)
  - Myopathy toxic [Unknown]
